FAERS Safety Report 9601775 (Version 1)
Quarter: 2013Q4

REPORT INFORMATION
  Report Type: Spontaneous
  Country: US (occurrence: None)
  Receive Date: 20131004
  Receipt Date: 20131004
  Transmission Date: 20140711
  Serious: Yes (Life-Threatening, Hospitalization, Disabling, Other)
  Sender: FDA-Public Use
  Company Number: None

PATIENT
  Age: 22 Year
  Sex: Male
  Weight: 102.06 kg

DRUGS (1)
  1. FIORICET [Suspect]
     Indication: MIGRAINE
     Dosage: 1 TAB X 6 HOURS FOR 3 DAYS
     Route: 048
     Dates: start: 20130809, end: 20130814

REACTIONS (4)
  - Contusion [None]
  - Epistaxis [None]
  - Thrombocytopenia [None]
  - Mouth haemorrhage [None]
